FAERS Safety Report 8433766 (Version 2)
Quarter: 2012Q4

REPORT INFORMATION
  Report Type: 
  Country: BG (occurrence: BG)
  Receive Date: 20120229
  Receipt Date: 20120928
  Transmission Date: 20130627
  Serious: Yes (Other)
  Sender: FDA-Public Use
  Company Number: PHHY2012BG016120

PATIENT
  Age: 73 Year
  Sex: Male

DRUGS (1)
  1. ZOMETA [Suspect]
     Dosage: 4 mg, UNK

REACTIONS (11)
  - Osteonecrosis of jaw [Not Recovered/Not Resolved]
  - Exposed bone in jaw [Not Recovered/Not Resolved]
  - Bone lesion [Not Recovered/Not Resolved]
  - Purulent discharge [Not Recovered/Not Resolved]
  - Osteitis [Recovered/Resolved]
  - Pain in jaw [Recovered/Resolved]
  - Hyperaemia [Not Recovered/Not Resolved]
  - Toothache [Recovered/Resolved]
  - Tooth loss [Not Recovered/Not Resolved]
  - Gingival infection [Recovered/Resolved]
  - Gingival pain [Recovered/Resolved]
